FAERS Safety Report 20753705 (Version 2)
Quarter: 2023Q2

REPORT INFORMATION
  Report Type: Spontaneous
  Country: US (occurrence: None)
  Receive Date: 20220426
  Receipt Date: 20230420
  Transmission Date: 20230722
  Serious: No
  Sender: FDA-Public Use
  Company Number: US-ROCHE-2819313

PATIENT
  Age: 71 Year
  Sex: Male

DRUGS (2)
  1. ESBRIET [Suspect]
     Active Substance: PIRFENIDONE
     Indication: Idiopathic pulmonary fibrosis
     Dosage: TAKE 3 CAP BY MOUTH WITH FOOD EVERY MORNING, 2 CAP WITH FOOD MID DAY AND 2 CAP EVERY EVENING.
     Route: 048
     Dates: start: 20180306
  2. PANTOPRAZOLE [Concomitant]
     Active Substance: PANTOPRAZOLE

REACTIONS (3)
  - Off label use [Unknown]
  - No adverse event [Unknown]
  - Product dose omission in error [Unknown]
